FAERS Safety Report 7141732-4 (Version None)
Quarter: 2010Q4

REPORT INFORMATION
  Report Type: 
  Country: None (occurrence: None)
  Receive Date: 20101207
  Receipt Date: 20101124
  Transmission Date: 20110411
  Serious: Yes (Hospitalization, Other)
  Sender: FDA-Public Use
  Company Number: FR-KINGPHARMUSA00001-K201001442

PATIENT
  Age: 75 Year
  Sex: Female

DRUGS (5)
  1. ALTACE [Suspect]
     Indication: HYPERTENSION
     Dosage: 10 MG, QD
     Route: 048
     Dates: start: 20060601
  2. BISOPROLOL FUMARATE AND HYDROCHLOROTHIAZIDE [Suspect]
     Indication: HYPERTENSION
     Dosage: 17.5 MG, BID
     Route: 048
     Dates: start: 20060601, end: 20081201
  3. CITALOPRAM HYDROBROMIDE [Suspect]
     Indication: NORMAL PRESSURE HYDROCEPHALUS
     Dosage: 20 MG, QD
     Route: 048
     Dates: start: 20080201, end: 20081201
  4. MELPERONE [Concomitant]
     Dosage: UNK
     Dates: start: 20080201
  5. METFORMIN [Concomitant]
     Dosage: UNK
     Dates: start: 20070101

REACTIONS (10)
  - BEDRIDDEN [None]
  - DIARRHOEA [None]
  - GENERAL PHYSICAL HEALTH DETERIORATION [None]
  - HYPOKALAEMIA [None]
  - HYPONATRAEMIA [None]
  - LEUKOARAIOSIS [None]
  - MENTAL STATUS CHANGES [None]
  - NORMAL PRESSURE HYDROCEPHALUS [None]
  - OSTEOPOROSIS [None]
  - TYPE 2 DIABETES MELLITUS [None]
